FAERS Safety Report 4716867-3 (Version None)
Quarter: 2005Q3

REPORT INFORMATION
  Report Type: 
  Country: None (occurrence: None)
  Receive Date: 20050719
  Receipt Date: 20050314
  Transmission Date: 20060218
  Serious: Yes (Hospitalization, Other)
  Sender: FDA-Public Use
  Company Number: US-MERCK-0503USA02924

PATIENT
  Age: 64 Year
  Sex: Male
  Weight: 84 kg

DRUGS (2)
  1. VIOXX [Suspect]
     Indication: ARTHRALGIA
     Route: 048
     Dates: start: 20011025, end: 20031103
  2. VIOXX [Suspect]
     Route: 048
     Dates: start: 20011025, end: 20031103

REACTIONS (9)
  - CEREBROVASCULAR ACCIDENT [None]
  - GLUCOSE TOLERANCE IMPAIRED [None]
  - HYPERLIPIDAEMIA [None]
  - INSULIN RESISTANCE SYNDROME [None]
  - LUMBAR RADICULOPATHY [None]
  - METABOLIC SYNDROME [None]
  - NECK INJURY [None]
  - POLLAKIURIA [None]
  - SINUS BRADYCARDIA [None]
